FAERS Safety Report 4834453-1 (Version None)
Quarter: 2005Q4

REPORT INFORMATION
  Report Type: 
  Country: None (occurrence: None)
  Receive Date: 20051122
  Receipt Date: 20041118
  Transmission Date: 20060501
  Serious: No
  Sender: FDA-Public Use
  Company Number: US-BRISTOL-MYERS SQUIBB COMPANY-12770814

PATIENT
  Age: 77 Year
  Sex: Male
  Weight: 91 kg

DRUGS (1)
  1. PRAVACHOL [Suspect]
     Indication: BLOOD CHOLESTEROL INCREASED
     Dosage: TOOK UNSPECIFIED DOSE FOR 2-3 YEARS AND D/C IN SEP-2003.  RESTARTED ON 12-NOV-2004
     Route: 048
     Dates: start: 20041112

REACTIONS (1)
  - URTICARIA [None]
